FAERS Safety Report 4738508-1 (Version None)
Quarter: 2005Q3

REPORT INFORMATION
  Report Type: 
  Country: None (occurrence: None)
  Receive Date: 20050803
  Receipt Date: 20050713
  Transmission Date: 20060218
  Serious: Yes (Other)
  Sender: FDA-Public Use
  Company Number: DE_050716340

PATIENT
  Age: 10 Year
  Sex: Male
  Weight: 53 kg

DRUGS (1)
  1. STRATTERA [Suspect]
     Indication: ATTENTION DEFICIT/HYPERACTIVITY DISORDER
     Dosage: 60 MG DAY
     Dates: start: 20050324, end: 20050613

REACTIONS (11)
  - ABDOMINAL PAIN UPPER [None]
  - ADENOIDECTOMY [None]
  - AGGRESSION [None]
  - ANGER [None]
  - ANHEDONIA [None]
  - DEPRESSED MOOD [None]
  - NO THERAPEUTIC RESPONSE [None]
  - SOMNOLENCE [None]
  - STRESS [None]
  - SUICIDAL IDEATION [None]
  - THERAPEUTIC RESPONSE DECREASED [None]
